FAERS Safety Report 7255415-3 (Version None)
Quarter: 2011Q1

REPORT INFORMATION
  Report Type: 
  Country: None (occurrence: None)
  Receive Date: 20110129
  Receipt Date: 20100413
  Transmission Date: 20110831
  Serious: Yes (Hospitalization, Other)
  Sender: FDA-Public Use
  Company Number: US-ABBOTT-10P-163-0637983-00

PATIENT
  Sex: Male
  Weight: 71.278 kg

DRUGS (2)
  1. HUMIRA [Suspect]
  2. HUMIRA [Suspect]
     Indication: CROHN'S DISEASE
     Dosage: DAY 1
     Dates: start: 20091001

REACTIONS (5)
  - MYALGIA [None]
  - THROMBOSIS [None]
  - PHLEBITIS [None]
  - NEPHROLITHIASIS [None]
  - PAIN [None]
